FAERS Safety Report 9004151 (Version 2)
Quarter: 2013Q1

REPORT INFORMATION
  Report Type: Spontaneous
  Country: US (occurrence: US)
  Receive Date: 20130109
  Receipt Date: 20130213
  Transmission Date: 20140127
  Serious: No
  Sender: FDA-Public Use
  Company Number: US-BIOGENIDEC-2013BI000571

PATIENT
  Age: 33 Year
  Sex: Female

DRUGS (2)
  1. TYSABRI [Suspect]
     Indication: MULTIPLE SCLEROSIS
     Route: 042
     Dates: start: 20121115
  2. COPAXONE [Concomitant]

REACTIONS (12)
  - Painful respiration [Unknown]
  - Infusion site pain [Unknown]
  - Flushing [Unknown]
  - Chest pain [Unknown]
  - Cognitive disorder [Recovered/Resolved]
  - Underdose [Unknown]
  - Delusion [Recovered/Resolved]
  - Disturbance in attention [Recovered/Resolved]
  - Dizziness [Recovered/Resolved]
  - Hypersensitivity [Not Recovered/Not Resolved]
  - Multiple sclerosis relapse [Unknown]
  - Chest discomfort [Recovered/Resolved]
